FAERS Safety Report 9745623 (Version 2)
Quarter: 2014Q1

REPORT INFORMATION
  Report Type: Spontaneous
  Country: US (occurrence: US)
  Receive Date: 20131211
  Receipt Date: 20140217
  Transmission Date: 20141002
  Serious: Yes (Other)
  Sender: FDA-Public Use
  Company Number: US-AMGEN-USASP2013085717

PATIENT
  Age: 67 Year
  Sex: Female
  Weight: 55.33 kg

DRUGS (1)
  1. PROLIA [Suspect]
     Indication: OSTEOPOROSIS
     Dosage: 60 MG, Q6MO
     Route: 058
     Dates: start: 20131126

REACTIONS (6)
  - Hypersensitivity [Unknown]
  - Eye swelling [Recovered/Resolved]
  - Lip swelling [Recovered/Resolved]
  - Swelling face [Unknown]
  - Urticaria [Unknown]
  - Rash [Recovered/Resolved]
